FAERS Safety Report 7209299-X (Version None)
Quarter: 2011Q1

REPORT INFORMATION
  Report Type: 
  Country: None (occurrence: None)
  Receive Date: 20110104
  Receipt Date: 20100915
  Transmission Date: 20110831
  Serious: No
  Sender: FDA-Public Use
  Company Number: US-BAYER-201021599BCC

PATIENT
  Sex: Female
  Weight: 53.636 kg

DRUGS (4)
  1. MULTIVITAMIN [Concomitant]
     Dosage: AS USED DOSE: UNK
     Route: 065
  2. ALEVE [Suspect]
     Indication: PAIN
     Dosage: 220 MG, BID
     Route: 048
  3. ALEVE [Suspect]
     Dosage: 220 MG, OM
     Route: 048
     Dates: end: 20100615
  4. ZOCOR [Concomitant]
     Dosage: AS USED DOSE: UNK
     Route: 065

REACTIONS (2)
  - PAIN [None]
  - EYE HAEMORRHAGE [None]
